FAERS Safety Report 24989937 (Version 1)
Quarter: 2025Q1

REPORT INFORMATION
  Report Type: Spontaneous
  Country: US (occurrence: US)
  Receive Date: 20250220
  Receipt Date: 20250220
  Transmission Date: 20250408
  Serious: Yes (Other)
  Sender: COOPERSURGICAL
  Company Number: US-COOPERSURGICAL, INC.-2025CPS000963

PATIENT
  Age: 28 Year
  Sex: Female
  Weight: 68.027 kg

DRUGS (1)
  1. PARAGARD T 380A [Suspect]
     Active Substance: COPPER
     Indication: Contraception
     Route: 015
     Dates: start: 20110630

REACTIONS (16)
  - Breast cancer [Unknown]
  - Uterine leiomyoma [Unknown]
  - Internal haemorrhage [Recovered/Resolved]
  - Device breakage [Recovered/Resolved]
  - Foreign body in reproductive tract [Recovered/Resolved]
  - Complication of device removal [Recovered/Resolved]
  - Uterine perforation [Recovered/Resolved]
  - Uterine scar [Not Recovered/Not Resolved]
  - Genital contusion [Recovered/Resolved]
  - Emotional distress [Not Recovered/Not Resolved]
  - Emotional disorder [Unknown]
  - Abnormal uterine bleeding [Unknown]
  - Discomfort [Unknown]
  - Pain [Recovered/Resolved]
  - Pelvic pain [Unknown]
  - Unevaluable event [Unknown]

NARRATIVE: CASE EVENT DATE: 20140801
